FAERS Safety Report 21612124 (Version 1)
Quarter: 2022Q4

REPORT INFORMATION
  Report Type: Spontaneous
  Country: US (occurrence: US)
  Receive Date: 20221118
  Receipt Date: 20221118
  Transmission Date: 20230113
  Serious: No
  Sender: FDA-Public Use
  Company Number: US-SA-SAC20221116000325

PATIENT
  Sex: Male
  Weight: 81.6 kg

DRUGS (1)
  1. DUPIXENT [Suspect]
     Active Substance: DUPILUMAB
     Indication: Dermatitis atopic
     Dosage: 300 MG, QOW
     Route: 058

REACTIONS (6)
  - Rhinorrhoea [Unknown]
  - Nasal congestion [Unknown]
  - Eyelid margin crusting [Recovering/Resolving]
  - Eye irritation [Unknown]
  - Injection site pain [Unknown]
  - Dermatitis atopic [Recovering/Resolving]
